FAERS Safety Report 4836343-7 (Version None)
Quarter: 2005Q4

REPORT INFORMATION
  Report Type: 
  Country: None (occurrence: None)
  Receive Date: 20051118
  Receipt Date: 20051114
  Transmission Date: 20060501
  Serious: Yes (Hospitalization, Other)
  Sender: FDA-Public Use
  Company Number: DEWYE136514NOV05

PATIENT
  Age: 75 Year
  Sex: Female

DRUGS (11)
  1. VENLAFAXINE HCL [Suspect]
     Indication: DEPRESSION
     Dosage: 37.5 MG; 75 MG
     Route: 048
     Dates: start: 20050510, end: 20050510
  2. VENLAFAXINE HCL [Suspect]
     Indication: DEPRESSION
     Dosage: 37.5 MG; 75 MG
     Route: 048
     Dates: start: 20050511, end: 20050531
  3. LORAZEPAM [Concomitant]
  4. ZOLPIDEM TARTRATE [Concomitant]
  5. SOLIAN (AMISULPRIDE) [Concomitant]
  6. LEVOTHYROXINE SODIUM [Concomitant]
  7. DYTIDE H (HYDROCHLOROTHIAZIDE/TRIAMTERENE, 0) [Suspect]
  8. PANTOZOL (PANTOPRAZOLE SODIUM, , 0) [Suspect]
     Dosage: 40 MG
     Route: 048
     Dates: start: 20050310
  9. PLAVIX [Suspect]
     Dosage: ORAL
     Route: 048
  10. SORTIS (ATORVASTATIN CALCIUM, , 0) [Suspect]
     Dosage: 10 MG
     Route: 048
  11. ENALAPRIL MALEATE [Suspect]
     Dosage: 15 MG
     Route: 048

REACTIONS (6)
  - BLOOD OSMOLARITY DECREASED [None]
  - BLOOD POTASSIUM DECREASED [None]
  - CONDITION AGGRAVATED [None]
  - DRUG INTERACTION [None]
  - HYPONATRAEMIA [None]
  - POLYDIPSIA PSYCHOGENIC [None]
